FAERS Safety Report 7819123-X (Version None)
Quarter: 2011Q4

REPORT INFORMATION
  Report Type: 
  Country: None (occurrence: None)
  Receive Date: 20111018
  Receipt Date: 20111010
  Transmission Date: 20120403
  Serious: Yes (Hospitalization)
  Sender: FDA-Public Use
  Company Number: PHHY2011GB82645

PATIENT
  Age: 10 Year
  Sex: Female
  Weight: 29 kg

DRUGS (10)
  1. CEFOTAXIME [Concomitant]
  2. DICLOFENAC SODIUM [Concomitant]
  3. ONDANSETRON [Suspect]
     Indication: PROCEDURAL NAUSEA
     Dosage: 4 MG, UNK
     Route: 042
     Dates: start: 20110906, end: 20110907
  4. THIOPENTAL SODIUM [Concomitant]
  5. IBUPROFEN [Concomitant]
  6. METRONIDAZOLE [Concomitant]
  7. VECURONIUM BROMIDE [Concomitant]
  8. ACETAMINOPHEN [Concomitant]
  9. MORPHINE [Concomitant]
  10. SUXAMETHONIUM [Concomitant]

REACTIONS (7)
  - SYNCOPE [None]
  - MALAISE [None]
  - CYANOSIS [None]
  - BLOOD GLUCOSE DECREASED [None]
  - CHEST DISCOMFORT [None]
  - VISUAL IMPAIRMENT [None]
  - LOSS OF CONSCIOUSNESS [None]
